FAERS Safety Report 9241918 (Version 3)
Quarter: 2013Q3

REPORT INFORMATION
  Report Type: Report from Study
  Country: US (occurrence: US)
  Receive Date: 20130419
  Receipt Date: 20130703
  Transmission Date: 20140515
  Serious: No
  Sender: FDA-Public Use
  Company Number: US-NOVOPROD-375289

PATIENT
  Age: 71 Year
  Sex: Female
  Weight: 81.63 kg

DRUGS (7)
  1. LIRAGLUTIDE FLEXPEN [Suspect]
     Indication: TYPE 2 DIABETES MELLITUS
     Dosage: 0.6 MG, QD
     Route: 058
     Dates: start: 20120214, end: 20130328
  2. FOSAMAX [Concomitant]
     Indication: OSTEOPOROSIS
     Dosage: 70.0
     Dates: start: 20110303, end: 20121114
  3. DITROPAN [Concomitant]
     Indication: HYPERTONIC BLADDER
     Dosage: 15.0 MG, QD
     Dates: start: 20110908, end: 20121114
  4. ZOCOR [Concomitant]
     Dosage: UNK
     Dates: end: 201211
  5. LOPID [Concomitant]
     Indication: HYPERLIPIDAEMIA
     Dosage: 1200.0 MG, QD
     Dates: start: 20120222, end: 20121111
  6. LANTUS [Concomitant]
     Indication: TYPE 2 DIABETES MELLITUS
     Dosage: 8.0 IU, QD
     Dates: start: 20120307, end: 20120312
  7. MOBIC [Concomitant]

REACTIONS (1)
  - Weight decreased [Not Recovered/Not Resolved]
